FAERS Safety Report 13134768 (Version 1)
Quarter: 2017Q1

REPORT INFORMATION
  Report Type: Spontaneous
  Country: JP (occurrence: JP)
  Receive Date: 20170120
  Receipt Date: 20170120
  Transmission Date: 20170428
  Serious: Yes (Hospitalization, Disabling)
  Sender: FDA-Public Use
  Company Number: JP-PFIZER INC-2016554183

PATIENT
  Age: 81 Year
  Sex: Female
  Weight: 158 kg

DRUGS (9)
  1. POLARAMINE [Concomitant]
     Active Substance: DEXCHLORPHENIRAMINE MALEATE
     Dosage: 5 MG, 1X/DAY
     Route: 042
     Dates: start: 20160913, end: 20161109
  2. DEXART [Concomitant]
     Active Substance: DEXAMETHASONE SODIUM PHOSPHATE
     Dosage: 6.6 MG, 1X/DAY
     Route: 042
     Dates: start: 20160913, end: 20161109
  3. NIFEDIPINE. [Concomitant]
     Active Substance: NIFEDIPINE
     Indication: HYPERTENSION
     Dosage: 40 MG, 1X/DAY
     Route: 048
     Dates: start: 20160826, end: 20161211
  4. TORISEL [Suspect]
     Active Substance: TEMSIROLIMUS
     Indication: RENAL CANCER METASTATIC
     Dosage: 25 MG, WEEKLY
     Route: 041
     Dates: start: 20160913, end: 20161109
  5. FAMOTIDIN [Concomitant]
     Indication: PEPTIC ULCER
     Dosage: 20 MG, 2X/DAY
     Route: 048
     Dates: start: 20160904, end: 20161211
  6. GEBEN [Concomitant]
     Active Substance: SILVER SULFADIAZINE
     Indication: SKIN EROSION
     Dosage: UNK
     Route: 062
     Dates: start: 20160831, end: 20161109
  7. CADEX [Concomitant]
     Indication: SKIN EROSION
     Dosage: UNK
     Route: 062
     Dates: start: 20161109, end: 20161222
  8. NAIXAN [Concomitant]
     Active Substance: NAPROXEN SODIUM
     Indication: TUMOUR ASSOCIATED FEVER
     Dosage: 200 MG, 3X/DAY
     Route: 048
     Dates: start: 20160904, end: 20161019
  9. AZUNOL [Concomitant]
     Active Substance: SODIUM GUALENATE
     Indication: SKIN EROSION
     Dosage: UNK
     Route: 062
     Dates: start: 20161222

REACTIONS (4)
  - Oedema [Recovered/Resolved]
  - Neoplasm progression [Unknown]
  - Cerebral infarction [Not Recovered/Not Resolved]
  - Rash [Recovered/Resolved]

NARRATIVE: CASE EVENT DATE: 20161018
